FAERS Safety Report 14225616 (Version 1)
Quarter: 2017Q4

REPORT INFORMATION
  Report Type: Spontaneous
  Country: US (occurrence: US)
  Receive Date: 20171126
  Receipt Date: 20171126
  Transmission Date: 20180321
  Serious: Yes (Disabling, Other)
  Sender: FDA-Public Use
  Company Number: None

PATIENT
  Sex: Male
  Weight: 92.7 kg

DRUGS (2)
  1. BOTOX [Suspect]
     Active Substance: ONABOTULINUMTOXINA
     Indication: HEADACHE
     Route: 058
     Dates: start: 20171123
  2. COMPAZINE [Concomitant]
     Active Substance: PROCHLORPERAZINE MALEATE

REACTIONS (16)
  - Mental impairment [None]
  - Visual impairment [None]
  - Nonspecific reaction [None]
  - Anxiety [None]
  - Feeling drunk [None]
  - Depression [None]
  - Asthenia [None]
  - Dysarthria [None]
  - Speech disorder [None]
  - Diplopia [None]
  - Vision blurred [None]
  - Asthenopia [None]
  - Headache [None]
  - Eyelid ptosis [None]
  - Insomnia [None]
  - Loss of personal independence in daily activities [None]

NARRATIVE: CASE EVENT DATE: 20171123
